FAERS Safety Report 5454567-5 (Version None)
Quarter: 2007Q3

REPORT INFORMATION
  Report Type: 
  Country: None (occurrence: None)
  Receive Date: 20070917
  Receipt Date: 20060911
  Transmission Date: 20080115
  Serious: Yes (Hospitalization)
  Sender: FDA-Public Use
  Company Number: US-ASTRAZENECA-2006UW17761

PATIENT
  Age: 85 Year
  Sex: Male

DRUGS (9)
  1. SEROQUEL [Suspect]
     Indication: AGGRESSION
     Route: 048
     Dates: start: 20060801
  2. NAMENDA [Suspect]
     Indication: DEMENTIA
     Route: 048
     Dates: start: 20060801, end: 20060807
  3. NAMENDA [Suspect]
     Route: 048
     Dates: start: 20060808, end: 20060814
  4. NAMENDA [Suspect]
     Route: 048
     Dates: start: 20060815, end: 20060819
  5. SYNTHROID [Concomitant]
  6. ATENOLOL [Concomitant]
  7. CRESTOR [Concomitant]
     Route: 048
  8. FUROSEMIDE [Concomitant]
  9. ASPIRIN [Concomitant]

REACTIONS (1)
  - SEDATION [None]
